FAERS Safety Report 5194417-8 (Version None)
Quarter: 2006Q4

REPORT INFORMATION
  Report Type: 
  Country: None (occurrence: None)
  Receive Date: 20061228
  Receipt Date: 20061106
  Transmission Date: 20070319
  Serious: Yes (Other)
  Sender: FDA-Public Use
  Company Number: GB-PFIZER INC-2006137037

PATIENT
  Age: 62 Year
  Sex: Male
  Weight: 81 kg

DRUGS (7)
  1. PREGABALIN [Suspect]
     Indication: NEURALGIA
     Route: 048
     Dates: start: 20061001, end: 20061001
  2. ASPIRIN [Concomitant]
     Route: 048
  3. ATENOLOL [Concomitant]
     Route: 048
     Dates: start: 19990101
  4. ISOSORBIDE [Concomitant]
     Route: 048
     Dates: start: 20040101
  5. METFORMIN HCL [Concomitant]
     Route: 048
     Dates: start: 20050101
  6. RAMIPRIL [Concomitant]
     Route: 048
     Dates: start: 20050101
  7. ROSUVASTATIN [Concomitant]
     Route: 048
     Dates: start: 20050101

REACTIONS (2)
  - CONVULSION [None]
  - MUSCLE TWITCHING [None]
